FAERS Safety Report 8976024 (Version 1)
Quarter: 2012Q4

REPORT INFORMATION
  Report Type: 
  Country: US (occurrence: US)
  Receive Date: 20121219
  Receipt Date: 20121219
  Transmission Date: 20130627
  Serious: No
  Sender: FDA-Public Use
  Company Number: US-AMGEN-USASP2012067832

PATIENT
  Age: 62 Year
  Sex: Female

DRUGS (3)
  1. PROLIA [Suspect]
     Indication: OSTEOPOROSIS POSTMENOPAUSAL
     Dosage: UNK
     Dates: start: 20120619
  2. CALCIUM [Concomitant]
  3. VITAMIN D /00107901/ [Concomitant]

REACTIONS (3)
  - Bone loss [Unknown]
  - Coeliac disease [Unknown]
  - Gastric disorder [Unknown]
